FAERS Safety Report 7585659-2 (Version None)
Quarter: 2011Q2

REPORT INFORMATION
  Report Type: 
  Country: None (occurrence: None)
  Receive Date: 20110624
  Receipt Date: 20110610
  Transmission Date: 20111010
  Serious: Yes (Life-Threatening, Other)
  Sender: FDA-Public Use
  Company Number: AUR-APL-2011-02907

PATIENT
  Age: 82 Year
  Sex: Female
  Weight: 55 kg

DRUGS (10)
  1. FUROSEMIDE [Concomitant]
  2. CO-CODAMOL (PANADEINE CO) [Concomitant]
  3. SIMVASTATIN [Concomitant]
  4. ALEDRONIC ACID [Concomitant]
  5. CALCIUM AND VITAMIN D (OS-CAL) [Concomitant]
  6. ERYTHROMYCIN [Concomitant]
  7. ASPIRIN [Concomitant]
  8. OMEPRAZOLE [Concomitant]
  9. BISOPROLOL FUMARATE [Suspect]
     Indication: CARDIAC FAILURE
     Dosage: 1.25 MG, ORAL
     Route: 048
     Dates: start: 20110228, end: 20110228
  10. PERINDOPRIL [Concomitant]

REACTIONS (6)
  - CONDITION AGGRAVATED [None]
  - MALAISE [None]
  - CARDIAC FAILURE [None]
  - LIP SWELLING [None]
  - OEDEMA MOUTH [None]
  - SWOLLEN TONGUE [None]
